FAERS Safety Report 4635800-6 (Version None)
Quarter: 2005Q2

REPORT INFORMATION
  Report Type: 
  Country: None (occurrence: None)
  Receive Date: 20050414
  Receipt Date: 20050330
  Transmission Date: 20051028
  Serious: Yes (Hospitalization, Other)
  Sender: FDA-Public Use
  Company Number: USA-2003-0005430

PATIENT
  Age: 51 Year
  Sex: Male
  Weight: 102 kg

DRUGS (22)
  1. OXYCONTIN [Suspect]
     Indication: PAIN
     Dosage: 20 MG, SEE TEXT, ORAL; 40 MG, SEE TEXT, ORAL; 10 MG, SEE TEXT, ORAL
     Route: 048
     Dates: start: 19961008, end: 19961203
  2. OXYCONTIN [Suspect]
     Indication: PAIN
     Dosage: 20 MG, SEE TEXT, ORAL; 40 MG, SEE TEXT, ORAL; 10 MG, SEE TEXT, ORAL
     Route: 048
     Dates: start: 19980526, end: 20000525
  3. OXYCONTIN [Suspect]
     Indication: PAIN
     Dosage: 20 MG, SEE TEXT, ORAL; 40 MG, SEE TEXT, ORAL; 10 MG, SEE TEXT, ORAL
     Route: 048
     Dates: start: 19961203, end: 20000901
  4. ULTRAM [Concomitant]
  5. DOCUSATE SODIUM [Concomitant]
  6. AMITRIPTYLINE HCL [Concomitant]
  7. PROZAC [Concomitant]
  8. PRILOSEC [Concomitant]
  9. SENNTAB (SENNA LEAF) [Concomitant]
  10. MOTRIN [Concomitant]
  11. VERAPAMIL [Concomitant]
  12. BENADRYL [Concomitant]
  13. TRAZODONE HCL [Concomitant]
  14. LORTAB [Concomitant]
  15. HYCODAN [Concomitant]
  16. VALIUM [Concomitant]
  17. BUSPAR [Concomitant]
  18. LACTULOSE [Concomitant]
  19. VIOXX [Concomitant]
  20. ZANAFLEX [Concomitant]
  21. NEURONTIN [Concomitant]
  22. DURAGESIC (FENTANYL) [Concomitant]

REACTIONS (36)
  - AGGRESSION [None]
  - ANXIETY [None]
  - ASTHENIA [None]
  - CHILLS [None]
  - CONFUSIONAL STATE [None]
  - CONSTIPATION [None]
  - COUGH [None]
  - CRYING [None]
  - DELIRIUM [None]
  - DEMENTIA [None]
  - DEPRESSION [None]
  - DISORIENTATION [None]
  - DRUG ABUSER [None]
  - DRUG DEPENDENCE [None]
  - DRUG TOXICITY [None]
  - DRUG WITHDRAWAL SYNDROME [None]
  - DYSAESTHESIA [None]
  - DYSARTHRIA [None]
  - EMOTIONAL DISTRESS [None]
  - ENCEPHALOPATHY [None]
  - FALL [None]
  - FEELING COLD [None]
  - FLAT AFFECT [None]
  - GALLBLADDER DISORDER [None]
  - GASTROINTESTINAL DISORDER [None]
  - HALLUCINATION, VISUAL [None]
  - MEMORY IMPAIRMENT [None]
  - MUSCLE SPASMS [None]
  - NEUROPATHY PERIPHERAL [None]
  - PAIN IN EXTREMITY [None]
  - PARAESTHESIA [None]
  - PUPILS UNEQUAL [None]
  - RECTAL HAEMORRHAGE [None]
  - SLEEP DISORDER [None]
  - UPPER RESPIRATORY TRACT INFECTION [None]
  - YAWNING [None]
